FAERS Safety Report 7863943-2 (Version None)
Quarter: 2011Q4

REPORT INFORMATION
  Report Type: 
  Country: None (occurrence: None)
  Receive Date: 20111028
  Receipt Date: 20111020
  Transmission Date: 20120403
  Serious: No
  Sender: FDA-Public Use
  Company Number: US-BIOGENIDEC-2011BI040193

PATIENT
  Age: 52 Year
  Sex: Male

DRUGS (2)
  1. TYSABRI [Suspect]
     Route: 042
     Dates: start: 20080422, end: 20110222
  2. TYSABRI [Suspect]
     Indication: MULTIPLE SCLEROSIS
     Route: 042
     Dates: start: 20110912

REACTIONS (7)
  - CONFUSIONAL STATE [None]
  - HYPOAESTHESIA [None]
  - DYSPEPSIA [None]
  - SENSATION OF FOREIGN BODY [None]
  - BALANCE DISORDER [None]
  - STRESS [None]
  - BURNING SENSATION [None]
